FAERS Safety Report 10557989 (Version 1)
Quarter: 2014Q4

REPORT INFORMATION
  Report Type: Spontaneous
  Country: JP (occurrence: JP)
  Receive Date: 20141031
  Receipt Date: 20141031
  Transmission Date: 20150529
  Serious: Yes (Hospitalization)
  Sender: FDA-Public Use
  Company Number: PHJP2014JP001268

PATIENT
  Age: 75 Year
  Sex: Male

DRUGS (5)
  1. WARFARIN [Interacting]
     Active Substance: WARFARIN
     Dosage: UNK
     Route: 048
  2. TEGRETOL [Interacting]
     Active Substance: CARBAMAZEPINE
     Route: 048
  3. WARFARIN [Interacting]
     Active Substance: WARFARIN
     Dosage: UNK
     Route: 048
  4. TEGRETOL [Suspect]
     Active Substance: CARBAMAZEPINE
     Indication: TRIGEMINAL NEURALGIA
     Route: 048
  5. WARFARIN [Interacting]
     Active Substance: WARFARIN
     Indication: PROPHYLAXIS
     Dosage: UNK
     Route: 048

REACTIONS (7)
  - Gait disturbance [Recovering/Resolving]
  - Dizziness [Recovering/Resolving]
  - Cognitive disorder [Unknown]
  - Anticonvulsant drug level increased [Unknown]
  - Coagulation time shortened [Unknown]
  - Drug interaction [Unknown]
  - Medication error [Unknown]
